FAERS Safety Report 19584540 (Version 1)
Quarter: 2021Q3

REPORT INFORMATION
  Report Type: Spontaneous
  Country: US (occurrence: US)
  Receive Date: 20210720
  Receipt Date: 20210720
  Transmission Date: 20211014
  Serious: No
  Sender: FDA-Public Use
  Company Number: US-B.BRAUN MEDICAL INC.-2114042

PATIENT
  Age: 65 Year
  Sex: Female

DRUGS (1)
  1. THEOPHYLLINE IN 5% DEXTROSE INJECTIONS USP 0264?9554?10 0264?9558?10 ( [Suspect]
     Active Substance: DEXTROSE MONOHYDRATE\THEOPHYLLINE\THEOPHYLLINE ANHYDROUS

REACTIONS (1)
  - Therapeutic product effect decreased [None]
